FAERS Safety Report 11827267 (Version 1)
Quarter: 2015Q4

REPORT INFORMATION
  Report Type: Spontaneous
  Country: US (occurrence: US)
  Receive Date: 20151211
  Receipt Date: 20151211
  Transmission Date: 20160305
  Serious: Yes (Death)
  Sender: FDA-Public Use
  Company Number: US-PFIZER INC-2015426256

PATIENT
  Age: 49 Year
  Sex: Female

DRUGS (11)
  1. IBUPROFEN. [Suspect]
     Active Substance: IBUPROFEN
  2. VALSARTAN. [Suspect]
     Active Substance: VALSARTAN
  3. OMEPRAZOLE. [Suspect]
     Active Substance: OMEPRAZOLE
  4. MELATONIN [Suspect]
     Active Substance: MELATONIN
  5. GABAPENTIN. [Suspect]
     Active Substance: GABAPENTIN
  6. BUPROPION. [Suspect]
     Active Substance: BUPROPION
  7. DIAZEPAM. [Suspect]
     Active Substance: DIAZEPAM
  8. TRAZODONE [Suspect]
     Active Substance: TRAZODONE HYDROCHLORIDE
  9. HYDROCHLOROTHIAZIDE. [Suspect]
     Active Substance: HYDROCHLOROTHIAZIDE
  10. SIMVASTATIN. [Suspect]
     Active Substance: SIMVASTATIN
  11. LEVOTHYROXINE SODIUM. [Suspect]
     Active Substance: LEVOTHYROXINE SODIUM

REACTIONS (1)
  - Completed suicide [Fatal]

NARRATIVE: CASE EVENT DATE: 2014
